FAERS Safety Report 16990697 (Version 1)
Quarter: 2019Q4

REPORT INFORMATION
  Report Type: Spontaneous
  Country: US (occurrence: US)
  Receive Date: 20190920
  Receipt Date: 20190920
  Transmission Date: 20200122
  Serious: No
  Sender: FDA-Public Use
  Company Number: None

PATIENT
  Age: 64 Year
  Sex: Male

DRUGS (1)
  1. NUCALA [Suspect]
     Active Substance: MEPOLIZUMAB
     Indication: ASTHMA
     Route: 058
     Dates: start: 20190910

REACTIONS (5)
  - Heart rate increased [None]
  - Dyspnoea [None]
  - Hypersensitivity [None]
  - Dizziness [None]
  - Heart rate decreased [None]

NARRATIVE: CASE EVENT DATE: 20190911
